FAERS Safety Report 8398260-8 (Version None)
Quarter: 2012Q2

REPORT INFORMATION
  Report Type: 
  Country: None (occurrence: None)
  Receive Date: 20120531
  Receipt Date: 20120525
  Transmission Date: 20120825
  Serious: Yes (Hospitalization, Congenital Anomaly, Other)
  Sender: FDA-Public Use
  Company Number: US-PFIZER INC-2012127094

PATIENT
  Sex: Female
  Weight: 2 kg

DRUGS (2)
  1. ZOLOFT [Suspect]
     Dosage: 100 MG, UNK
     Route: 064
     Dates: start: 20051122
  2. ZOLOFT [Suspect]
     Dosage: 50 MG, UNK
     Route: 064
     Dates: start: 20050824

REACTIONS (11)
  - MATERNAL EXPOSURE TIMING UNSPECIFIED [None]
  - ATRIAL SEPTAL DEFECT [None]
  - EBSTEIN'S ANOMALY [None]
  - TRICUSPID VALVE INCOMPETENCE [None]
  - SMALL FOR DATES BABY [None]
  - DILATATION VENTRICULAR [None]
  - SEPSIS NEONATAL [None]
  - RIGHT ATRIAL DILATATION [None]
  - NEONATAL RESPIRATORY DISTRESS SYNDROME [None]
  - ATELECTASIS NEONATAL [None]
  - VENTRICULAR HYPOPLASIA [None]
